FAERS Safety Report 7322605-0 (Version None)
Quarter: 2011Q1

REPORT INFORMATION
  Report Type: 
  Country: None (occurrence: None)
  Receive Date: 20110301
  Receipt Date: 20110225
  Transmission Date: 20110831
  Serious: No
  Sender: FDA-Public Use
  Company Number: US-PFIZER INC-2011041928

PATIENT
  Sex: Female

DRUGS (3)
  1. ZESTORETIC [Concomitant]
     Dosage: 12.5/10 MG, UNK
  2. AMLODIPINE [Concomitant]
     Dosage: 5 MG, UNK
  3. NEURONTIN [Suspect]
     Dosage: UNK
     Route: 048

REACTIONS (1)
  - PRODUCT TASTE ABNORMAL [None]
